FAERS Safety Report 5219564-3 (Version None)
Quarter: 2007Q1

REPORT INFORMATION
  Report Type: 
  Country: None (occurrence: None)
  Receive Date: 20070125
  Receipt Date: 20070116
  Transmission Date: 20070707
  Serious: Yes (Other)
  Sender: FDA-Public Use
  Company Number: US-PFIZER INC-2007004125

PATIENT
  Age: 68 Year
  Sex: Female

DRUGS (1)
  1. LIPITOR [Suspect]

REACTIONS (6)
  - ARTHRALGIA [None]
  - DEHYDRATION [None]
  - DIARRHOEA [None]
  - MYALGIA [None]
  - PYREXIA [None]
  - TENDERNESS [None]
